FAERS Safety Report 7128050-5 (Version None)
Quarter: 2010Q4

REPORT INFORMATION
  Report Type: 
  Country: None (occurrence: None)
  Receive Date: 20101130
  Receipt Date: 20101119
  Transmission Date: 20110411
  Serious: Yes (Other)
  Sender: FDA-Public Use
  Company Number: BR-ELI_LILLY_AND_COMPANY-BR201011005414

PATIENT
  Sex: Female
  Weight: 79 kg

DRUGS (4)
  1. FORTEO [Suspect]
     Dosage: UNK, DAILY (1/D)
     Route: 065
     Dates: start: 20080401
  2. FORTEO [Suspect]
     Dates: start: 20101101
  3. NAPRIX [Concomitant]
     Indication: HYPERTENSION
     Dosage: 25 MG, AS NEEDED
     Route: 048
  4. METFORMIN HCL [Concomitant]
     Indication: TYPE 2 DIABETES MELLITUS
     Dosage: 850 MG, DAILY (1/D)
     Route: 065

REACTIONS (6)
  - BONE PAIN [None]
  - EXOSTOSIS [None]
  - INTERVERTEBRAL DISC PROTRUSION [None]
  - OSTEOARTHRITIS [None]
  - OSTEOPOROSIS [None]
  - WEIGHT DECREASED [None]
